FAERS Safety Report 20876780 (Version 1)
Quarter: 2022Q2

REPORT INFORMATION
  Report Type: Report from Study
  Country: CA (occurrence: CA)
  Receive Date: 20220526
  Receipt Date: 20220526
  Transmission Date: 20220721
  Serious: Yes (Other)
  Sender: FDA-Public Use
  Company Number: CA-NOVARTISPH-NVSC2022CA119349

PATIENT
  Age: 83 Year
  Sex: Female
  Weight: 83 kg

DRUGS (1)
  1. PIRFENIDONE [Suspect]
     Active Substance: PIRFENIDONE
     Indication: Idiopathic pulmonary fibrosis
     Dosage: UNK
     Route: 048

REACTIONS (10)
  - Ocular hypertension [Unknown]
  - Pneumonia [Unknown]
  - Arthralgia [Unknown]
  - Eye disorder [Unknown]
  - Cough [Unknown]
  - Sinus congestion [Unknown]
  - Wheezing [Unknown]
  - Sarcopenia [Unknown]
  - Upper-airway cough syndrome [Unknown]
  - Restrictive pulmonary disease [Unknown]
